FAERS Safety Report 8740909 (Version 2)
Quarter: 2013Q4

REPORT INFORMATION
  Report Type: Spontaneous
  Country: US (occurrence: US)
  Receive Date: 20120823
  Receipt Date: 20131101
  Transmission Date: 20140711
  Serious: No
  Sender: FDA-Public Use
  Company Number: US-009507513-1208USA005745

PATIENT
  Sex: Female

DRUGS (5)
  1. PEGINTRON [Suspect]
     Dosage: 96 MICROGRAM, QW
     Route: 058
  2. VICTRELIS [Suspect]
  3. RIBAPAK [Suspect]
     Dosage: PAK 800/DAY
  4. CELEXA [Concomitant]
  5. MILK THISTLE [Concomitant]

REACTIONS (4)
  - Injection site erythema [Unknown]
  - Injection site pruritus [Unknown]
  - Pruritus [Unknown]
  - Erythema [Unknown]
